FAERS Safety Report 18730537 (Version 2)
Quarter: 2021Q1

REPORT INFORMATION
  Report Type: Spontaneous
  Country: AR (occurrence: AR)
  Receive Date: 20210112
  Receipt Date: 20210114
  Transmission Date: 20210419
  Serious: Yes (Other)
  Sender: FDA-Public Use
  Company Number: AR-PFIZER INC-2021012882

PATIENT
  Age: 46 Year
  Sex: Male

DRUGS (1)
  1. SUTENT [Suspect]
     Active Substance: SUNITINIB MALATE
     Indication: METASTATIC RENAL CELL CARCINOMA
     Dosage: 50 MG, UNK
     Dates: start: 20201030

REACTIONS (6)
  - Skin ulcer [Unknown]
  - Skin hyperpigmentation [Unknown]
  - Rash [Unknown]
  - Leukoplakia oral [Unknown]
  - Product dispensing error [Unknown]
  - Tongue ulceration [Unknown]

NARRATIVE: CASE EVENT DATE: 20210107
